FAERS Safety Report 5024623-4 (Version None)
Quarter: 2006Q2

REPORT INFORMATION
  Report Type: 
  Country: None (occurrence: None)
  Receive Date: 20060607
  Receipt Date: 20060503
  Transmission Date: 20061013
  Serious: Yes (Life-Threatening, Hospitalization)
  Sender: FDA-Public Use
  Company Number: FR 2006 0064

PATIENT
  Sex: Male

DRUGS (1)
  1. DOTAREM [Suspect]
     Indication: NUCLEAR MAGNETIC RESONANCE IMAGING BRAIN
     Dosage: 15ML PER DAY INTRA-VENOUS
     Route: 042
     Dates: start: 20060420

REACTIONS (2)
  - CARDIOGENIC SHOCK [None]
  - URTICARIA [None]
